FAERS Safety Report 6018683-1 (Version None)
Quarter: 2008Q4

REPORT INFORMATION
  Report Type: 
  Country: None (occurrence: None)
  Receive Date: 20081223
  Receipt Date: 20081217
  Transmission Date: 20090506
  Serious: Yes (Hospitalization, Other)
  Sender: FDA-Public Use
  Company Number: BE-ABBOTT-08P-013-0468359-00

PATIENT
  Sex: Male

DRUGS (4)
  1. HUMIRA [Suspect]
     Indication: PSORIATIC ARTHROPATHY
     Route: 058
     Dates: start: 20080101, end: 20080728
  2. LEDERTREXATE [Concomitant]
     Indication: PSORIATIC ARTHROPATHY
     Dates: end: 20080728
  3. FOLIC ACID [Concomitant]
     Indication: DRUG USE FOR UNKNOWN INDICATION
  4. OMEPRAZOLE [Concomitant]
     Indication: DRUG USE FOR UNKNOWN INDICATION

REACTIONS (16)
  - CHILLS [None]
  - DRY MOUTH [None]
  - GASTRITIS [None]
  - HYPOAESTHESIA [None]
  - INFLAMMATION [None]
  - INTESTINAL OBSTRUCTION [None]
  - MALIGNANT ASCITES [None]
  - NAUSEA [None]
  - NEPHROLITHIASIS [None]
  - OESOPHAGITIS [None]
  - OMENTUM NEOPLASM [None]
  - PAIN [None]
  - PYREXIA [None]
  - RENAL CYST [None]
  - TUBERCULOSIS GASTROINTESTINAL [None]
  - VOMITING [None]
